FAERS Safety Report 11165025 (Version 1)
Quarter: 2015Q2

REPORT INFORMATION
  Report Type: Spontaneous
  Country: US (occurrence: US)
  Receive Date: 20150604
  Receipt Date: 20150604
  Transmission Date: 20150821
  Serious: Yes (Other)
  Sender: FDA-Public Use
  Company Number: US-CELGENE-163-50794-13034771

PATIENT

DRUGS (5)
  1. DEXAMETHASONE. [Suspect]
     Active Substance: DEXAMETHASONE
     Indication: PLASMA CELL MYELOMA
     Route: 065
  2. VIDAZA [Suspect]
     Active Substance: AZACITIDINE
     Route: 058
  3. REVLIMID [Suspect]
     Active Substance: LENALIDOMIDE
     Indication: PLASMA CELL MYELOMA
     Route: 048
  4. VIDAZA [Suspect]
     Active Substance: AZACITIDINE
     Dosage: 30 TO 50MG/M2
     Route: 058
  5. VIDAZA [Suspect]
     Active Substance: AZACITIDINE
     Indication: PLASMA CELL MYELOMA
     Dosage: 30
     Route: 058

REACTIONS (11)
  - Depression [Unknown]
  - Neutropenia [Unknown]
  - Infection [Unknown]
  - Deep vein thrombosis [Unknown]
  - Atrial fibrillation [Unknown]
  - Diarrhoea [Unknown]
  - Anaemia [Unknown]
  - Febrile neutropenia [Unknown]
  - Fatigue [Unknown]
  - Thrombocytopenia [Unknown]
  - Pyrexia [Unknown]
